FAERS Safety Report 4503981-0 (Version None)
Quarter: 2004Q4

REPORT INFORMATION
  Report Type: 
  Country: None (occurrence: None)
  Receive Date: 20041115
  Receipt Date: 20041108
  Transmission Date: 20050328
  Serious: Yes (Other)
  Sender: FDA-Public Use
  Company Number: 002984

PATIENT
  Age: 62 Year
  Sex: Female
  Weight: 77.1 kg

DRUGS (3)
  1. TAMOXIFEN CITRATE [Suspect]
     Indication: BREAST CANCER
     Dosage: 10 MG ,BID,ORAL/20 MG,BID,
     Route: 048
  2. NOLVADEX [Suspect]
     Indication: BREAST CANCER
     Dosage: 10.00 MG, BID, ORAL
     Route: 048
     Dates: start: 20000601
  3. TAMOXIFEN (TAMOXIFEN) [Suspect]
     Indication: BREAST CANCER
     Dates: start: 20030620

REACTIONS (9)
  - ALOPECIA [None]
  - ARTHRALGIA [None]
  - DISTURBANCE IN ATTENTION [None]
  - GASTROOESOPHAGEAL REFLUX DISEASE [None]
  - HEPATIC ENZYME INCREASED [None]
  - HOT FLUSH [None]
  - INSOMNIA [None]
  - MEDICATION ERROR [None]
  - VITREOUS DETACHMENT [None]
